FAERS Safety Report 9366447 (Version 3)
Quarter: 2013Q3

REPORT INFORMATION
  Report Type: Report from Study
  Country: DE (occurrence: DE)
  Receive Date: 20130625
  Receipt Date: 20130913
  Transmission Date: 20140515
  Serious: Yes (Life-Threatening, Hospitalization)
  Sender: FDA-Public Use
  Company Number: DE-ABBOTT-13P-062-1108527-00

PATIENT
  Age: 62 Year
  Sex: Male
  Weight: 144 kg

DRUGS (5)
  1. HUMIRA [Suspect]
     Indication: RHEUMATOID ARTHRITIS
     Route: 058
     Dates: start: 20100421, end: 20120514
  2. HUMIRA [Suspect]
     Route: 058
     Dates: start: 20120524, end: 20130529
  3. PREDNISOLONE [Concomitant]
     Indication: RHEUMATOID ARTHRITIS
     Route: 048
     Dates: start: 200301, end: 20130620
  4. BENZBROMARON [Concomitant]
     Indication: GOUT
     Route: 048
     Dates: start: 200906, end: 20130620
  5. NEBIVOLOL [Concomitant]
     Indication: HYPERTENSION
     Route: 048
     Dates: start: 20100421

REACTIONS (4)
  - Renal failure acute [Recovered/Resolved]
  - Gastric banding [Recovered/Resolved]
  - Dehydration [Unknown]
  - Abdominal pain upper [Recovered/Resolved]
